FAERS Safety Report 10005283 (Version 1)
Quarter: 2014Q1

REPORT INFORMATION
  Report Type: Spontaneous
  Country: BG (occurrence: BG)
  Receive Date: 20140312
  Receipt Date: 20140312
  Transmission Date: 20141002
  Serious: Yes (Other)
  Sender: FDA-Public Use
  Company Number: BG-WATSON-2014-04577

PATIENT
  Sex: Female

DRUGS (4)
  1. DIAZEPAM ACTAVIS [Suspect]
     Indication: BIPOLAR DISORDER
     Dosage: 10 MG, UNK
     Route: 048
  2. LEXOTAN [Suspect]
     Indication: PRODUCT USED FOR UNKNOWN INDICATION
     Dosage: 3 MG, UNK
     Route: 065
  3. REMIRTA [Concomitant]
     Indication: PRODUCT USED FOR UNKNOWN INDICATION
     Dosage: 15 MG AT BEDTIME, UNK
     Route: 065
  4. GERODORM [Concomitant]
     Indication: DRUG INEFFECTIVE
     Dosage: 40 MG TABLETS
     Route: 065

REACTIONS (1)
  - Drug ineffective [Unknown]
